FAERS Safety Report 9424843 (Version 4)
Quarter: 2016Q1

REPORT INFORMATION
  Report Type: Spontaneous
  Country: US (occurrence: US)
  Receive Date: 20130729
  Receipt Date: 20160311
  Transmission Date: 20160526
  Serious: No
  Sender: FDA-Public Use
  Company Number: US-PFIZER INC-2013217104

PATIENT
  Age: 66 Year
  Sex: Female

DRUGS (52)
  1. SYMBICORT [Concomitant]
     Active Substance: BUDESONIDE\FORMOTEROL FUMARATE DIHYDRATE
     Dosage: 160-4.5 MCG/ACT, INHALE 2 PUFFS TWICE DAILY
     Dates: start: 20060926
  2. DIPHENHYDRAMINE HCL [Concomitant]
     Active Substance: DIPHENHYDRAMINE HYDROCHLORIDE
     Dosage: 50 MG, 1X/DAY; TAKE ONE @ BEDTIME
     Dates: start: 20140128
  3. PULMICORT TURBUHALER [Concomitant]
     Active Substance: BUDESONIDE
     Dosage: 0.5 MG/2 ML INHALATION SUSPENSION USE 1 UNIT DOSE VIA NEBULIZER 2 TIMES A DAY PRN ONLY
     Dates: start: 20100503
  4. LYRICA [Suspect]
     Active Substance: PREGABALIN
     Indication: DIABETIC NEUROPATHY
     Dosage: 150 MG, 2X/DAY
     Route: 048
     Dates: start: 20120123
  5. FLUTICASONE PROPIONATE. [Concomitant]
     Active Substance: FLUTICASONE PROPIONATE
     Dosage: UNK UNK, 1X/DAY (50 MCG/ACT NASAL SUSPENSION; USE 1 TO 2 SPRAYS IN EACH NOSTRIL ONE TIME DAILY)
  6. CAPTOPRIL. [Concomitant]
     Active Substance: CAPTOPRIL
     Indication: DIABETIC NEPHROPATHY
     Dosage: 50 MG, 2X/DAY
     Route: 048
     Dates: start: 20090817
  7. ACYCLOVIR. [Concomitant]
     Active Substance: ACYCLOVIR
     Dosage: 800 MG; TAKE 1 TABLET 5 TIMES DAILY
     Route: 048
     Dates: start: 20090624
  8. ALLOPURINOL. [Concomitant]
     Active Substance: ALLOPURINOL
     Dosage: 100 MG, DAILY ( TAKE 1 TABLET DAILY AS DIRECTED)
     Route: 048
     Dates: start: 20110210
  9. CALCIUM [Concomitant]
     Active Substance: CALCIUM
     Dosage: 600 MG, 2X/DAY; TAKE ONE TWICE DAILY
     Route: 048
     Dates: start: 20130312
  10. FUROSEMIDE. [Concomitant]
     Active Substance: FUROSEMIDE
     Dosage: 120 MG, DAILY (40MG, TAKE THREE TABLETS )
     Route: 048
  11. VITAMIN C [Concomitant]
     Active Substance: ASCORBIC ACID
     Dosage: 1000 MG, 2X/DAY
     Route: 048
     Dates: start: 20121115
  12. VITAMIN E [Concomitant]
     Active Substance: .ALPHA.-TOCOPHEROL
     Dosage: 400 IU, DAILY
     Route: 048
     Dates: start: 20121115
  13. POTASSIUM [Concomitant]
     Active Substance: POTASSIUM
     Dosage: 160 MEQ, DAILY (20 MEQ, AKE 8 TABLETS BY MOUTH DAILY)
     Route: 048
  14. FLUCONAZOLE. [Concomitant]
     Active Substance: FLUCONAZOLE
     Dosage: 200 MG, DAILY ( TAKE 1 TABLET DAILY AS DIRECTED)
     Route: 048
     Dates: start: 20091019
  15. PREDNISONE. [Concomitant]
     Active Substance: PREDNISONE
     Dosage: 5 MG, 1X/DAY
     Route: 048
  16. ONDANSETRON HCL [Concomitant]
     Active Substance: ONDANSETRON HYDROCHLORIDE
     Indication: NAUSEA
     Dosage: 4 MG, AS NEEDED (1-2 TABLETS BY MOUTH EVERY 6 HOURS AS NEEDED )
     Route: 048
  17. LYRICA [Suspect]
     Active Substance: PREGABALIN
     Dosage: 75 MG, 2X/DAY
     Route: 048
  18. FLAXSEED [Concomitant]
     Active Substance: FLAX SEED
     Dosage: 1000 MG, 2X/DAY
     Route: 048
     Dates: start: 20130711
  19. KENALOG [Concomitant]
     Active Substance: TRIAMCINOLONE ACETONIDE
     Dosage: 40 MG/ML INJECTION SUSPENSION. 1ML KENALOG PLUS 6 ML OF BUPIVICAINE
     Dates: start: 20140207
  20. MULTI-B [Concomitant]
     Dosage: 1 DF, DAILY
     Route: 048
     Dates: start: 20120522
  21. PREDNISONE. [Concomitant]
     Active Substance: PREDNISONE
     Dosage: 40 MG, DAILY
     Route: 048
     Dates: start: 20120314
  22. TRAMADOL HYDROCHLORIDE. [Concomitant]
     Active Substance: TRAMADOL HYDROCHLORIDE
     Dosage: 100 MG, 4X/DAY
     Route: 048
     Dates: start: 20081002
  23. BACTRIM DS [Concomitant]
     Active Substance: SULFAMETHOXAZOLE\TRIMETHOPRIM
     Dosage: 1 DF, 2X/DAY (SULFAMETHOXAZOLE 800 MG; TRIMETHOPRIM 160 MG)
     Route: 048
  24. PROAIR HFA [Concomitant]
     Active Substance: ALBUTEROL SULFATE
     Dosage: UNK, AS NEEDED (108 (90 BASE) MCG/ACT, INHALE 1 TO 2 PUFFS EVERY 6 HOURS AS NEEDED)
  25. LYRICA [Suspect]
     Active Substance: PREGABALIN
     Dosage: 150 MG, 2X/DAY
     Route: 048
     Dates: start: 20130628
  26. FLUTICASONE PROPIONATE. [Concomitant]
     Active Substance: FLUTICASONE PROPIONATE
     Dosage: 50 MCG/ACT,  2 SPRAYS IN EACH NOSTRILS ONCE DAILY
     Route: 045
     Dates: start: 20100405
  27. GLIPIZIDE. [Concomitant]
     Active Substance: GLIPIZIDE
     Dosage: 10 MG, 2X/DAY
     Route: 048
     Dates: start: 20110909
  28. CINNAMON. [Concomitant]
     Active Substance: CINNAMON
     Dosage: 500 MG, 2X/DAY ( TAKE 1 CAPSULE TWICE DAILY)
     Route: 048
     Dates: start: 20120124
  29. IPRATROPIUM BROMIDE. [Concomitant]
     Active Substance: IPRATROPIUM BROMIDE
     Dosage: 0.02 % INHALATION SOLUTION USE 1 UNIT DOSE IN NEBULIZER EVERY 4 HOURS. MIX WITH 1 UNIT DOSE ALBUTERO
     Dates: start: 20080820
  30. MAGNESIUM OXIDE. [Concomitant]
     Active Substance: MAGNESIUM OXIDE
     Dosage: 250 MG, 3X/DAY
     Route: 048
     Dates: start: 20130711
  31. VITAMIN D [Concomitant]
     Active Substance: CHOLECALCIFEROL
     Dosage: 400 IU, DAILY
     Route: 048
     Dates: start: 20130312
  32. VITAMIN D [Concomitant]
     Active Substance: CHOLECALCIFEROL
     Dosage: 50000 IU, WEEKLY (TAKE ONE CAPSULE WEEKLY X 12 WEEKS )
     Route: 048
  33. SYMBICORT [Concomitant]
     Active Substance: BUDESONIDE\FORMOTEROL FUMARATE DIHYDRATE
     Dosage: 160-4.5 MCG/ACT, INHALE 2 PUFFS TWICE DAILY
     Dates: start: 20080926
  34. HYDROCODONE BITARTRATE AND ACETAMINOPHEN [Concomitant]
     Active Substance: ACETAMINOPHEN\HYDROCODONE BITARTRATE
     Dosage: 5-325 MG
     Dates: start: 20091217
  35. POTASSIUM [Concomitant]
     Active Substance: POTASSIUM
     Dosage: 140 MEQ, DAILY
     Dates: start: 20110414
  36. CAPTOPRIL. [Concomitant]
     Active Substance: CAPTOPRIL
     Dosage: 25 MG, 2X/DAY
     Route: 048
  37. METOLAZONE. [Concomitant]
     Active Substance: METOLAZONE
     Dosage: 5 MG, 1X/DAY
     Route: 048
     Dates: start: 20100824
  38. RANITIDINE HYDROCHLORIDE. [Concomitant]
     Active Substance: RANITIDINE HYDROCHLORIDE
     Dosage: 150 MG, 2X/DAY
     Route: 048
     Dates: start: 20130306
  39. MULTIVITE PLUS [Concomitant]
     Dosage: 1 DF, DAILY
     Route: 048
     Dates: start: 20121115
  40. NYSTATIN. [Concomitant]
     Active Substance: NYSTATIN
     Dosage: UNK UNK, AS NEEDED (100000 UNIT/ML,2 TEASPOONFULS (10ML) TWO TIMES DAILY AS NEEDED)
     Route: 048
  41. HYDROCODONE BITARTRATE AND ACETAMINOPHEN [Concomitant]
     Active Substance: ACETAMINOPHEN\HYDROCODONE BITARTRATE
     Dosage: UNK, AS NEEDED (HYDROCODONE (5MG)-ACETAMINOPHEN (325 MG), 1 TO 2 TABLETS EVERY 4 TO 6 HOURS)
     Route: 048
  42. BUDESONIDE. [Concomitant]
     Active Substance: BUDESONIDE
     Dosage: UNK (0.5 MG/2ML INHALATION SUSPENSION USE 1 UNIT DOSE VIA NEBULIZER 2 TIMES A DAY PRN)
     Dates: start: 20100425
  43. FUROSEMIDE. [Concomitant]
     Active Substance: FUROSEMIDE
     Dosage: 40 MG, TAKE 2-3 TABLETS DAILY
     Route: 048
     Dates: start: 20091016
  44. LACTULOSE. [Concomitant]
     Active Substance: LACTULOSE
     Indication: CONSTIPATION
     Dosage: 10 GM/15 ML; TAKE 1-2 TABLESPOONFUL BY MOUTH DAILY AS NEEDED
     Route: 048
     Dates: start: 20100218
  45. LACTULOSE. [Concomitant]
     Active Substance: LACTULOSE
     Dosage: UNK, DAILY (10 GM/15MLORAL SOLUTION; TAKE 3 TBSP DAILY)
  46. GUAIFENESIN. [Concomitant]
     Active Substance: GUAIFENESIN
     Dosage: 800 MG, AS NEEDED (TAKE 2 TABLET 3 TIMES DAILY AS NEEDED)
  47. VENTOLIN [Concomitant]
     Active Substance: ALBUTEROL SULFATE
     Dosage: (90 BASE) MCG/ACT, INHALE 1 TO 2 PUFFS EVERY - 6 HOURS AS NEEDED
     Dates: start: 20100405
  48. HYDROCODONE BITARTRATE AND ACETAMINOPHEN [Concomitant]
     Active Substance: ACETAMINOPHEN\HYDROCODONE BITARTRATE
     Indication: PAIN
     Dosage: HYDROCODONE (5MG)-ACETAMINOPHEN (500 MG), 1 TO 2 TABLETS EVERY 6 HOURS AS NEEDED
     Route: 048
     Dates: start: 20091217
  49. AMANTADINE HYDROCHLORIDE. [Concomitant]
     Active Substance: AMANTADINE HYDROCHLORIDE
     Dosage: 100 MG, 2X/DAY, AS NEEDED
     Route: 048
     Dates: start: 20091016
  50. ALBUTEROL SULFATE. [Concomitant]
     Active Substance: ALBUTEROL SULFATE
     Dosage: (2.5 MG/3ML)0.083 % INHALATION NEBULIZATION SOLUTION INHALE THE CONTENTS OF ONE VIAL VIA SYN MACHINE
     Dates: start: 20080907
  51. ANTIPYRINE W/BENZOCAINE [Concomitant]
     Indication: EAR PAIN
     Dosage: 54-14 MG/ML, OTIC SOLUTION PLACE 2-3 DROPS IN THE AFFECTED EAR(S) EVERY 2-3 HOURS AS NEEDED
     Dates: start: 20100107
  52. PANTOPRAZOLE SODIUM. [Concomitant]
     Active Substance: PANTOPRAZOLE SODIUM
     Dosage: 40 MG, DAILY; TAKE 1 TABLET 30 MINUTES BEFORE BREAKFAST DAILY
     Route: 048
     Dates: start: 20111228

REACTIONS (3)
  - Therapeutic response unexpected [Unknown]
  - Blood glucose decreased [Unknown]
  - Musculoskeletal disorder [Unknown]
